FAERS Safety Report 12543618 (Version 1)
Quarter: 2016Q3

REPORT INFORMATION
  Report Type: Spontaneous
  Country: US (occurrence: None)
  Receive Date: 20160708
  Receipt Date: 20160708
  Transmission Date: 20161109
  Serious: Yes (Other)
  Sender: FDA-Public Use
  Company Number: None

PATIENT
  Age: 53 Year
  Sex: Female
  Weight: 81.65 kg

DRUGS (1)
  1. REQUIP [Suspect]
     Active Substance: ROPINIROLE HYDROCHLORIDE
     Indication: RESTLESS LEGS SYNDROME
     Dosage: ONCE A DAY TAKEN BY MOUTH
     Route: 048
     Dates: start: 20110701, end: 20160701

REACTIONS (3)
  - Compulsive sexual behaviour [None]
  - Gambling disorder [None]
  - Divorced [None]

NARRATIVE: CASE EVENT DATE: 20110701
